APPROVED DRUG PRODUCT: DILAUDID
Active Ingredient: HYDROMORPHONE HYDROCHLORIDE
Strength: 4MG
Dosage Form/Route: TABLET;ORAL
Application: N019892 | Product #002 | TE Code: AB
Applicant: RHODES PHARMACEUTICALS LP
Approved: Nov 9, 2007 | RLD: Yes | RS: No | Type: RX